FAERS Safety Report 9409208 (Version 2)
Quarter: 2013Q3

REPORT INFORMATION
  Report Type: Spontaneous
  Country: DE (occurrence: None)
  Receive Date: 20130430
  Receipt Date: 20130725
  Transmission Date: 20140515
  Serious: Yes (Hospitalization, Other)
  Sender: FDA-Public Use
  Company Number: 1302-215

PATIENT
  Age: 64 Year
  Sex: Female
  Weight: 67 kg

DRUGS (14)
  1. VEGF TRAP-EYE (INJECTION) (VEGF TRAP) [Suspect]
     Indication: DIABETIC RETINAL OEDEMA
     Route: 031
     Dates: start: 20120529, end: 20120529
  2. HUMALOG MIX (HUMALOG MIX) [Concomitant]
  3. ABILIFY (ARIPIPRAZOLE) [Concomitant]
  4. RIVOTRIL (CLONAZEPAM) [Concomitant]
  5. OLMETEC (OLMESARTAN MEDOXOMIL) (TABLET) (OLMESARTAN MEDOXOMIL) [Concomitant]
  6. CORTRIL (HYDROCORTISONE) [Concomitant]
  7. VILDAGILPTIN (VILDAGLIPTIN) [Concomitant]
  8. HIRNAMIN (LEVOMEPROMAZINE MALEATE) (TABLET) [Concomitant]
  9. TETRAMIDE (MIANSERIN HYDROCHLORIDE) (TABLET) [Concomitant]
  10. ALBUMIN (ALBUMIN HUMAN) [Concomitant]
  11. DOBUTREX (DOBUTAMINE HYDROCHLORIDE) [Concomitant]
  12. EQUA (VILDAGLIPTIN) [Concomitant]
  13. CORTRIL (HYDROCORTISONE) [Concomitant]
  14. OLMETEC (OLMESARTAN MEDOXOMIL) [Concomitant]

REACTIONS (8)
  - Acute myocardial infarction [None]
  - Nasopharyngitis [None]
  - Renal failure [None]
  - Malaise [None]
  - Cardiac failure congestive [None]
  - Haemodialysis [None]
  - Coronary artery stenosis [None]
  - Condition aggravated [None]
